FAERS Safety Report 4649181-5 (Version None)
Quarter: 2005Q2

REPORT INFORMATION
  Report Type: 
  Country: None (occurrence: None)
  Receive Date: 20050427
  Receipt Date: 20050407
  Transmission Date: 20051028
  Serious: Yes (Hospitalization, Disabling, Other)
  Sender: FDA-Public Use
  Company Number: US_0403101330

PATIENT
  Age: 57 Year
  Sex: Female
  Weight: 121 kg

DRUGS (1)
  1. HUMULIN 70/30 [Suspect]
     Indication: DIABETES MELLITUS
     Dosage: 100 U DAY
     Dates: start: 19890101

REACTIONS (10)
  - BLOOD GLUCOSE INCREASED [None]
  - HYPERTENSION [None]
  - LOWER LIMB FRACTURE [None]
  - MENTAL DISORDER [None]
  - MYOCARDIAL INFARCTION [None]
  - PAIN [None]
  - ROAD TRAFFIC ACCIDENT [None]
  - UPPER LIMB FRACTURE [None]
  - VISION BLURRED [None]
  - WEIGHT DECREASED [None]
